FAERS Safety Report 25613135 (Version 1)
Quarter: 2025Q3

REPORT INFORMATION
  Report Type: Spontaneous
  Country: US (occurrence: None)
  Receive Date: 20250726
  Receipt Date: 20250726
  Transmission Date: 20251021
  Serious: No
  Sender: FDA-CTU
  Company Number: None

PATIENT
  Age: 35 Year
  Sex: Male
  Weight: 32.85 kg

DRUGS (6)
  1. SUCRALFATE [Suspect]
     Active Substance: SUCRALFATE
     Indication: Oesophageal ulcer
     Dosage: OTHER QUANTITY : 60 TABLET(S)?FREQUENCY : TWICE A DAY?OTHER ROUTE : VIA G TUBE?
     Route: 050
  2. BACLOFEN [Concomitant]
     Active Substance: BACLOFEN
  3. GLCOPYRROLATE [Concomitant]
  4. DIAZEPAM [Concomitant]
     Active Substance: DIAZEPAM
  5. NEXIUM [Concomitant]
     Active Substance: ESOMEPRAZOLE MAGNESIUM
  6. CLARITIN [Concomitant]
     Active Substance: LORATADINE

REACTIONS (1)
  - Diarrhoea [None]

NARRATIVE: CASE EVENT DATE: 20250726
